FAERS Safety Report 9155859 (Version 1)
Quarter: 2013Q1

REPORT INFORMATION
  Report Type: Spontaneous
  Country: US (occurrence: US)
  Receive Date: 20130311
  Receipt Date: 20130311
  Transmission Date: 20140127
  Serious: Yes (Hospitalization)
  Sender: FDA-Public Use
  Company Number: US-ELI_LILLY_AND_COMPANY-US201302009779

PATIENT
  Age: 45 Year
  Sex: Female

DRUGS (4)
  1. HUMALOG LISPRO [Suspect]
     Indication: TYPE 1 DIABETES MELLITUS
     Dosage: 56 U, QD
     Dates: start: 2007
  2. HUMALOG LISPRO [Suspect]
     Dosage: 56 U, QD
  3. WARFARIN [Concomitant]
  4. PRAVASTATIN [Concomitant]

REACTIONS (8)
  - Osteoarthritis [Recovering/Resolving]
  - Blood glucose increased [Not Recovered/Not Resolved]
  - Hypotension [Unknown]
  - Fall [Unknown]
  - Joint range of motion decreased [Recovering/Resolving]
  - Arthralgia [Recovered/Resolved]
  - Sluggishness [Unknown]
  - Abdominal discomfort [Unknown]
